FAERS Safety Report 8540343-3 (Version None)
Quarter: 2012Q3

REPORT INFORMATION
  Report Type: 
  Country: None (occurrence: None)
  Receive Date: 20120726
  Receipt Date: 20120711
  Transmission Date: 20120928
  Serious: Yes (Hospitalization, Other)
  Sender: FDA-Public Use
  Company Number: US-009507513-1203USA01481

PATIENT

DRUGS (1)
  1. FOSAMAX [Suspect]
     Indication: OSTEOPOROSIS
     Dosage: 70 MG, UNK
     Route: 048
     Dates: start: 20010321

REACTIONS (26)
  - PLASMACYTOMA [None]
  - IMPAIRED HEALING [None]
  - HYPERLIPIDAEMIA [None]
  - FALL [None]
  - HAEMATOCRIT ABNORMAL [None]
  - GASTROOESOPHAGEAL REFLUX DISEASE [None]
  - PATHOLOGICAL FRACTURE [None]
  - HYSTERECTOMY [None]
  - OSTEONECROSIS OF JAW [None]
  - ORAL SURGERY [None]
  - BARRETT'S OESOPHAGUS [None]
  - BLOOD CALCIUM DECREASED [None]
  - DEVICE RELATED INFECTION [None]
  - DIABETES MELLITUS [None]
  - FRACTURE NONUNION [None]
  - OSTEOMYELITIS [None]
  - MULTIPLE MYELOMA [None]
  - DENTAL IMPLANTATION [None]
  - ABSCESS [None]
  - VITAMIN D DEFICIENCY [None]
  - ADVERSE EVENT [None]
  - CALCIUM DEFICIENCY [None]
  - BLOOD CULTURE POSITIVE [None]
  - HYPERTENSION [None]
  - VITAMIN D DECREASED [None]
  - DEVICE FAILURE [None]
